FAERS Safety Report 9451578 (Version 4)
Quarter: 2013Q4

REPORT INFORMATION
  Report Type: Spontaneous
  Country: US (occurrence: US)
  Receive Date: 20130811
  Receipt Date: 20131203
  Transmission Date: 20140711
  Serious: Yes (Hospitalization, Other)
  Sender: FDA-Public Use
  Company Number: US-UCBSA-094052

PATIENT
  Age: 56 Year
  Sex: Male

DRUGS (4)
  1. CIMZIA [Suspect]
     Indication: CROHN^S DISEASE
     Dosage: 102285. EXP DATE:??DEC/2014.
     Route: 058
     Dates: start: 20090126, end: 201310
  2. LISINOPRIL [Concomitant]
     Dosage: UNKNOWN DOSE
  3. LASIX [Concomitant]
     Dosage: UNKNOWN DOSE
  4. COUMADIN [Concomitant]
     Dosage: UNKNOWN DOSE

REACTIONS (2)
  - Cellulitis [Recovered/Resolved]
  - Oedema peripheral [Unknown]
